FAERS Safety Report 8915615 (Version 1)
Quarter: 2012Q4

REPORT INFORMATION
  Report Type: 
  Country: DE (occurrence: DE)
  Receive Date: 20121119
  Receipt Date: 20121119
  Transmission Date: 20130627
  Serious: Yes (Other)
  Sender: FDA-Public Use
  Company Number: DE-ASTRAZENECA-2012SE85468

PATIENT
  Age: 29138 Day
  Sex: Female
  Weight: 65 kg

DRUGS (2)
  1. BRILIQUE [Suspect]
     Route: 048
     Dates: start: 20120715, end: 20120815
  2. DUOPLAVIN [Suspect]
     Dosage: 75/100mg
     Route: 048
     Dates: start: 20120715, end: 20120815

REACTIONS (2)
  - Arthralgia [Recovered/Resolved]
  - Pain in extremity [Recovered/Resolved]
